FAERS Safety Report 9114916 (Version 1)
Quarter: 2013Q1

REPORT INFORMATION
  Report Type: Spontaneous
  Country: US (occurrence: None)
  Receive Date: 20130220
  Receipt Date: 20130220
  Transmission Date: 20140127
  Serious: Yes (Other)
  Sender: FDA-Public Use
  Company Number: None

PATIENT
  Age: 9 Year
  Sex: Male

DRUGS (1)
  1. NORDITROPIN FLEXPRO [Suspect]
     Dosage: 6XW
     Route: 058
     Dates: start: 20130110, end: 20130201

REACTIONS (3)
  - Aggression [None]
  - Abnormal behaviour [None]
  - Aggression [None]
